FAERS Safety Report 9209083 (Version 1)
Quarter: 2013Q2

REPORT INFORMATION
  Report Type: Spontaneous
  Country: US (occurrence: None)
  Receive Date: 20130403
  Receipt Date: 20130403
  Transmission Date: 20140414
  Serious: Yes (Death)
  Sender: FDA-Public Use
  Company Number: None

PATIENT
  Sex: 0

DRUGS (1)
  1. ZPACK [Suspect]
     Indication: SINUSITIS
     Dates: start: 20130324, end: 20130326

REACTIONS (1)
  - Sudden cardiac death [None]
